FAERS Safety Report 15251274 (Version 1)
Quarter: 2018Q3

REPORT INFORMATION
  Report Type: Spontaneous
  Country: US (occurrence: US)
  Receive Date: 20180807
  Receipt Date: 20180807
  Transmission Date: 20181010
  Serious: Yes (Other)
  Sender: FDA-Public Use
  Company Number: US-INCYTE CORPORATION-2018IN007719

PATIENT

DRUGS (1)
  1. JAKAFI [Suspect]
     Active Substance: RUXOLITINIB
     Indication: ADRENAL NEOPLASM
     Dosage: 50 MG, BID
     Route: 048
     Dates: start: 20180527, end: 20180701

REACTIONS (3)
  - Adrenal neoplasm [Unknown]
  - Off label use [Unknown]
  - Drug administered to patient of inappropriate age [Unknown]
